FAERS Safety Report 20720590 (Version 1)
Quarter: 2022Q2

REPORT INFORMATION
  Report Type: Spontaneous
  Country: CO (occurrence: CO)
  Receive Date: 20220418
  Receipt Date: 20220418
  Transmission Date: 20220720
  Serious: Yes (Death, Hospitalization)
  Sender: FDA-Public Use
  Company Number: CO-BAXTER-2022BAX008483

PATIENT
  Age: 59 Year
  Sex: Female
  Weight: 49.8 kg

DRUGS (1)
  1. DIANEAL LOW CALCIUM WITH DEXTROSE [Suspect]
     Active Substance: CALCIUM CHLORIDE\DEXTROSE\MAGNESIUM CHLORIDE\SODIUM CHLORIDE\SODIUM LACTATE
     Indication: Peritoneal dialysis
     Dosage: 4 CYCLES OF 1.6 L AND LAST INFUSION OF 1.6L
     Route: 033
     Dates: start: 20210910, end: 20220407

REACTIONS (2)
  - Acute myocardial infarction [Fatal]
  - Peripheral embolism [Unknown]

NARRATIVE: CASE EVENT DATE: 20220404
